FAERS Safety Report 4544080-1 (Version None)
Quarter: 2005Q1

REPORT INFORMATION
  Report Type: 
  Country: None (occurrence: None)
  Receive Date: 20050104
  Receipt Date: 20041220
  Transmission Date: 20050727
  Serious: Yes (Hospitalization)
  Sender: FDA-Public Use
  Company Number: BE-JNJFOC-20041206410

PATIENT
  Age: 16 Year
  Sex: Female

DRUGS (1)
  1. PROPULSID [Suspect]
     Route: 049

REACTIONS (2)
  - FUNDOPLICATION [None]
  - PNEUMONIA [None]
